FAERS Safety Report 20805080 (Version 2)
Quarter: 2022Q2

REPORT INFORMATION
  Report Type: Spontaneous
  Country: US (occurrence: US)
  Receive Date: 20220509
  Receipt Date: 20220529
  Transmission Date: 20220721
  Serious: No
  Sender: FDA-Public Use
  Company Number: US-BRISTOL-MYERS SQUIBB COMPANY-2022-025437

PATIENT
  Age: 76 Year

DRUGS (1)
  1. SPRYCEL [Suspect]
     Active Substance: DASATINIB
     Indication: Product used for unknown indication
     Dosage: 1 DOSAGE FORM = 1 TABLET
     Route: 048

REACTIONS (3)
  - Abdominal distension [Unknown]
  - Flatulence [Unknown]
  - Musculoskeletal stiffness [Unknown]
